FAERS Safety Report 4434395-X (Version None)
Quarter: 2004Q3

REPORT INFORMATION
  Report Type: 
  Country: None (occurrence: None)
  Receive Date: 20040825
  Receipt Date: 20040805
  Transmission Date: 20050211
  Serious: Yes (Death, Other)
  Sender: FDA-Public Use
  Company Number: US_0408104610

PATIENT
  Sex: Female

DRUGS (6)
  1. GEMZAR [Suspect]
     Indication: NON-SMALL CELL LUNG CANCER STAGE III
     Dosage: 1000 MG/M2 OTHER
     Route: 042
  2. CARBOPLATIN [Concomitant]
  3. VINORELBINE TARTRATE [Concomitant]
  4. PACLITAXEL [Concomitant]
  5. RADIATION THERAPY [Concomitant]
  6. DEXAMETHASONE [Concomitant]

REACTIONS (6)
  - DRUG TOXICITY [None]
  - MYELITIS [None]
  - PARAPLEGIA [None]
  - RADIATION MYELOPATHY [None]
  - RADIATION PNEUMONITIS [None]
  - SUDDEN DEATH [None]
